FAERS Safety Report 26127060 (Version 1)
Quarter: 2025Q4

REPORT INFORMATION
  Report Type: Spontaneous
  Country: US (occurrence: None)
  Receive Date: 20251205
  Receipt Date: 20251205
  Transmission Date: 20260118
  Serious: No
  Sender: FDA-CTU
  Company Number: None

PATIENT
  Age: 0 Year
  Sex: Female

DRUGS (25)
  1. AMBRISENTAN [Suspect]
     Active Substance: AMBRISENTAN
  2. ATORVASTATIN [Concomitant]
     Active Substance: ATORVASTATIN
  3. CALCIUM [Concomitant]
     Active Substance: CALCIUM
  4. DOCUSATE SODIUM [Concomitant]
     Active Substance: DOCUSATE SODIUM
  5. POTASSIUM [Concomitant]
     Active Substance: POTASSIUM
  6. GLIPIZIDE [Concomitant]
     Active Substance: GLIPIZIDE
  7. FAMOTIDINE [Concomitant]
     Active Substance: FAMOTIDINE
  8. HYDROCODONE BITARTRATE/AC [Concomitant]
  9. METFORMIN HYDROCHLORIDE [Concomitant]
     Active Substance: METFORMIN HYDROCHLORIDE
  10. ALBUTEROL SULFATE [Concomitant]
     Active Substance: ALBUTEROL SULFATE
  11. FUROSEMIDE [Concomitant]
     Active Substance: FUROSEMIDE
  12. ECK LORATADINE [Concomitant]
  13. ELIQUIS [Concomitant]
     Active Substance: APIXABAN
  14. TIZANIDINE HYDROCHLORIDE [Concomitant]
     Active Substance: TIZANIDINE HYDROCHLORIDE
  15. GABAPENTIN [Concomitant]
     Active Substance: GABAPENTIN
  16. TRAZODONE HCL [Concomitant]
     Active Substance: TRAZODONE HYDROCHLORIDE
  17. DILTIAZEM HYDROCHLORIDE [Concomitant]
     Active Substance: DILTIAZEM HYDROCHLORIDE
  18. HYDROXYZINE PAMOATE [Concomitant]
     Active Substance: HYDROXYZINE PAMOATE
  19. TRULICITY [Concomitant]
     Active Substance: DULAGLUTIDE
  20. BUMETANIDE [Concomitant]
     Active Substance: BUMETANIDE
  21. ZAFIRLUKAST [Concomitant]
     Active Substance: ZAFIRLUKAST
  22. DEXAMETHASONE [Concomitant]
     Active Substance: DEXAMETHASONE
  23. THIAMINE HYDROCHLORIDE [Concomitant]
     Active Substance: THIAMINE HYDROCHLORIDE
  24. FERROUS SULFATE [Suspect]
     Active Substance: FERROUS SULFATE
  25. SPIRONOLACTONE [Concomitant]
     Active Substance: SPIRONOLACTONE

REACTIONS (1)
  - Cardiac disorder [None]

NARRATIVE: CASE EVENT DATE: 19560308
